FAERS Safety Report 6021587-1 (Version None)
Quarter: 2008Q4

REPORT INFORMATION
  Report Type: 
  Country: None (occurrence: None)
  Receive Date: 20081229
  Receipt Date: 20081224
  Transmission Date: 20090506
  Serious: Yes (Death, Hospitalization)
  Sender: FDA-Public Use
  Company Number: PHHY2008JP33181

PATIENT
  Sex: Female

DRUGS (1)
  1. DIOVAN [Suspect]
     Indication: HYPERTENSION
     Dosage: 80 MG, QD
     Route: 048
     Dates: start: 20071001, end: 20071112

REACTIONS (4)
  - BLOOD PRESSURE SYSTOLIC INCREASED [None]
  - DEATH [None]
  - FALL [None]
  - LOWER LIMB FRACTURE [None]
